FAERS Safety Report 14684140 (Version 2)
Quarter: 2018Q2

REPORT INFORMATION
  Report Type: Spontaneous
  Country: IN (occurrence: IN)
  Receive Date: 20180327
  Receipt Date: 20180415
  Transmission Date: 20180711
  Serious: Yes (Hospitalization)
  Sender: FDA-Public Use
  Company Number: PHHY2018IN048662

PATIENT
  Age: 71 Year
  Sex: Female
  Weight: 64.99 kg

DRUGS (8)
  1. LETROZOLE. [Suspect]
     Active Substance: LETROZOLE
     Indication: BREAST CANCER METASTATIC
     Dosage: 2.5 MG, QD
     Route: 048
     Dates: start: 20170812
  2. ZOLEDRONIC ACID [Concomitant]
     Active Substance: ZOLEDRONIC ACID
     Indication: NEOPLASM MALIGNANT
     Route: 065
     Dates: start: 20170805
  3. SHELCAL [Concomitant]
     Indication: PROPHYLAXIS
     Dosage: 2 DF, UNK
     Route: 065
  4. AMITRIPTYLINE [Concomitant]
     Active Substance: AMITRIPTYLINE
     Indication: HYPERTENSION
     Dosage: UNK DF, UNK
     Route: 065
  5. NOVORAPID [Concomitant]
     Active Substance: INSULIN ASPART
     Indication: TYPE 2 DIABETES MELLITUS
     Route: 065
     Dates: start: 20170905
  6. PROPANOLOL [Concomitant]
     Active Substance: PROPRANOLOL HYDROCHLORIDE
     Indication: HYPERTENSION
     Route: 065
     Dates: start: 199701
  7. FEFOL [Concomitant]
     Active Substance: FERROUS SULFATE\FOLIC ACID
     Indication: PROPHYLAXIS
     Route: 065
  8. NOVOMIX [Concomitant]
     Active Substance: INSULIN ASPART
     Indication: TYPE 2 DIABETES MELLITUS
     Route: 065
     Dates: start: 20170905

REACTIONS (20)
  - Thrombocytopenia [Recovered/Resolved]
  - Renal failure [Recovered/Resolved]
  - Mucosal inflammation [Recovering/Resolving]
  - Oral candidiasis [Recovering/Resolving]
  - Varicella [Recovered/Resolved]
  - Crepitations [Unknown]
  - Tachypnoea [Unknown]
  - Febrile neutropenia [Recovered/Resolved]
  - Respiratory rate increased [Unknown]
  - Dyspnoea [Unknown]
  - Oropharyngeal pain [Unknown]
  - Epistaxis [Recovered/Resolved]
  - Pneumonia [Recovered/Resolved]
  - Epistaxis [Recovered/Resolved]
  - Hepatic failure [Recovering/Resolving]
  - Tachycardia [Unknown]
  - Skin lesion [Recovering/Resolving]
  - Pyrexia [Unknown]
  - Rhonchi [Unknown]
  - Swelling [Unknown]

NARRATIVE: CASE EVENT DATE: 20180207
